FAERS Safety Report 5131433-6 (Version None)
Quarter: 2006Q4

REPORT INFORMATION
  Report Type: 
  Country: None (occurrence: None)
  Receive Date: 20061020
  Receipt Date: 20060927
  Transmission Date: 20070319
  Serious: Yes (Hospitalization)
  Sender: FDA-Public Use
  Company Number: GB-BRISTOL-MYERS SQUIBB COMPANY-13524723

PATIENT
  Age: 52 Year
  Sex: Male

DRUGS (2)
  1. ABILIFY [Suspect]
     Indication: SCHIZOPHRENIA
     Route: 048
     Dates: start: 20050303
  2. ZOPICLONE [Concomitant]
     Indication: SLEEP DISORDER
     Route: 048
     Dates: start: 20050301, end: 20050414

REACTIONS (3)
  - HALLUCINATION, AUDITORY [None]
  - PSYCHOTIC DISORDER [None]
  - SLEEP DISORDER [None]
